FAERS Safety Report 12625459 (Version 2)
Quarter: 2016Q3

REPORT INFORMATION
  Report Type: Spontaneous
  Country: US (occurrence: US)
  Receive Date: 20160805
  Receipt Date: 20160919
  Transmission Date: 20161109
  Serious: Yes (Other)
  Sender: FDA-Public Use
  Company Number: US-PFIZER INC-2016369016

PATIENT
  Age: 61 Year
  Sex: Female
  Weight: 63.5 kg

DRUGS (2)
  1. ADVIL PM [Suspect]
     Active Substance: DIPHENHYDRAMINE CITRATE\IBUPROFEN
     Indication: BACK PAIN
     Dosage: 400 MG, DAILY (200MG TABLET, 2 TABLETS, BY MOUTH)
     Route: 048
     Dates: start: 20160726, end: 20160729
  2. ADVIL [Suspect]
     Active Substance: IBUPROFEN
     Dosage: UNK

REACTIONS (8)
  - Restless legs syndrome [Recovering/Resolving]
  - Product packaging issue [Recovering/Resolving]
  - Feeling abnormal [Recovering/Resolving]
  - Dry mouth [Recovering/Resolving]
  - Wrong drug administered [Recovering/Resolving]
  - Nausea [Recovering/Resolving]
  - Aphasia [Recovering/Resolving]
  - Somnolence [Recovering/Resolving]

NARRATIVE: CASE EVENT DATE: 20160626
